FAERS Safety Report 19561754 (Version 1)
Quarter: 2021Q3

REPORT INFORMATION
  Report Type: Spontaneous
  Country: US (occurrence: US)
  Receive Date: 20210716
  Receipt Date: 20210716
  Transmission Date: 20211014
  Serious: Yes (Hospitalization)
  Sender: FDA-Public Use
  Company Number: None

PATIENT
  Age: 58 Year
  Sex: Female
  Weight: 69.9 kg

DRUGS (6)
  1. STELARA [Suspect]
     Active Substance: USTEKINUMAB
  2. ASCORBIC ACID. [Concomitant]
     Active Substance: ASCORBIC ACID
  3. CHOLECALCIFEROL (VITAMIN D) [Concomitant]
  4. CYANOCOBALAMIN (B?12) [Concomitant]
     Active Substance: CYANOCOBALAMIN
  5. ZOFRAN ODT [Concomitant]
     Active Substance: ONDANSETRON HYDROCHLORIDE
  6. MVI [Concomitant]
     Active Substance: VITAMINS

REACTIONS (1)
  - Crohn^s disease [None]

NARRATIVE: CASE EVENT DATE: 20191207
